FAERS Safety Report 7909527-9 (Version None)
Quarter: 2011Q4

REPORT INFORMATION
  Report Type: 
  Country: None (occurrence: None)
  Receive Date: 20111111
  Receipt Date: 20111031
  Transmission Date: 20120403
  Serious: Yes (Hospitalization, Other)
  Sender: FDA-Public Use
  Company Number: US-ELI_LILLY_AND_COMPANY-US200908000312

PATIENT
  Age: 71 Year
  Sex: Female
  Weight: 42 kg

DRUGS (9)
  1. MIRTAZAPINE [Concomitant]
     Dosage: 2.5 MG, QD
  2. ASPIRIN [Concomitant]
     Dosage: 81 MG, QD
  3. RANITIDINE [Concomitant]
     Dosage: 150 MG, QD
  4. LIPITOR [Concomitant]
     Dosage: 20 MG, QD
  5. METOPROLOL TARTRATE [Concomitant]
     Dosage: 50 MG, BID
  6. VITAMIN E                            /001105/ [Concomitant]
  7. VITAMIN B-12 [Concomitant]
     Dosage: UNK
     Route: 060
  8. FORTEO [Suspect]
     Indication: OSTEOPOROSIS
     Dosage: UNK, QD
     Route: 058
     Dates: start: 20090101, end: 20110929
  9. PLAVIX [Concomitant]
     Indication: CONTUSION
     Dosage: 75 MG, QD

REACTIONS (3)
  - CONTUSION [None]
  - FALL [None]
  - HIP FRACTURE [None]
